FAERS Safety Report 16077773 (Version 4)
Quarter: 2019Q2

REPORT INFORMATION
  Report Type: Report from Study
  Country: DE (occurrence: DE)
  Receive Date: 20190315
  Receipt Date: 20190416
  Transmission Date: 20190711
  Serious: Yes (Hospitalization, Other)
  Sender: FDA-Public Use
  Company Number: DE-JNJFOC-20190232237

PATIENT
  Age: 57 Year
  Sex: Male
  Weight: 73 kg

DRUGS (21)
  1. DEKRISTOL [Concomitant]
     Active Substance: CHOLECALCIFEROL
     Indication: VITAMIN D DEFICIENCY
     Route: 065
     Dates: start: 20170918
  2. VOLTAREN [Concomitant]
     Active Substance: DICLOFENAC SODIUM
     Indication: BURSITIS
     Route: 065
     Dates: start: 20180512
  3. AZELASTIN [Concomitant]
     Indication: CONJUNCTIVITIS
     Route: 065
     Dates: start: 201707
  4. PARACETAMOL [Concomitant]
     Active Substance: ACETAMINOPHEN
     Indication: CONJUNCTIVITIS
     Route: 065
     Dates: start: 20160928
  5. ALFUZOSIN [Concomitant]
     Active Substance: ALFUZOSIN
     Indication: POLLAKIURIA
     Route: 065
     Dates: start: 20180907
  6. OFLOXACIN. [Concomitant]
     Active Substance: OFLOXACIN
     Indication: CONJUNCTIVITIS
     Route: 065
     Dates: start: 20170913
  7. CLEMASTINE [Concomitant]
     Active Substance: CLEMASTINE
     Indication: CONJUNCTIVITIS
     Route: 065
     Dates: start: 20160928
  8. PREDNISOLONE. [Concomitant]
     Active Substance: PREDNISOLONE
     Indication: CONJUNCTIVITIS
     Route: 065
     Dates: start: 20160928
  9. OBINUTUZUMAB. [Suspect]
     Active Substance: OBINUTUZUMAB
     Indication: B-CELL LYMPHOMA
     Route: 042
     Dates: start: 20160928, end: 20190117
  10. MOMETASONE [Concomitant]
     Active Substance: MOMETASONE
     Indication: DYSPNOEA
     Route: 065
     Dates: start: 20180829
  11. VOLTAREN [Concomitant]
     Active Substance: DICLOFENAC SODIUM
     Indication: BURSITIS
     Route: 065
     Dates: start: 20180512
  12. HYLO COMOD [Concomitant]
     Active Substance: HYALURONATE SODIUM
     Indication: CONJUNCTIVITIS
     Route: 065
     Dates: start: 201704
  13. LOPERAMIDE [Concomitant]
     Active Substance: LOPERAMIDE
     Indication: DIARRHOEA
     Route: 065
     Dates: start: 20181206
  14. CANDESARTAN. [Concomitant]
     Active Substance: CANDESARTAN
     Indication: HYPERTENSION
     Route: 065
     Dates: start: 20180717
  15. DEXAMETHASONE W/GENTAMICIN [Concomitant]
     Indication: CONJUNCTIVITIS
     Route: 065
     Dates: start: 201703
  16. CATIONORM [Concomitant]
     Active Substance: CETALKONIUM\GLYCERIN\MINERAL OIL\POLOXAMER 188\TROMETHAMINE\TYLOXAPOL
     Indication: CONJUNCTIVITIS
     Route: 065
     Dates: start: 201704
  17. RANITIDINE. [Concomitant]
     Active Substance: RANITIDINE
     Indication: CONJUNCTIVITIS
     Route: 065
     Dates: start: 20160928
  18. IMBRUVICA [Suspect]
     Active Substance: IBRUTINIB
     Indication: B-CELL LYMPHOMA
     Route: 048
     Dates: start: 20160928, end: 20190220
  19. DEXAGENTAMYCIN [Concomitant]
     Indication: CONJUNCTIVITIS
     Route: 047
     Dates: start: 20180829
  20. NOVOPULMON [Concomitant]
     Active Substance: BUDESONIDE
     Indication: COUGH
     Route: 065
     Dates: start: 20180822
  21. DEXA EDO [Concomitant]
     Active Substance: DEXAMETHASONE SODIUM PHOSPHATE
     Indication: CONJUNCTIVITIS
     Route: 065
     Dates: start: 20170913

REACTIONS (2)
  - Colitis [Not Recovered/Not Resolved]
  - Haemorrhoids thrombosed [Recovered/Resolved]

NARRATIVE: CASE EVENT DATE: 20190211
